FAERS Safety Report 8927120 (Version 2)
Quarter: 2013Q4

REPORT INFORMATION
  Report Type: Spontaneous
  Country: US (occurrence: US)
  Receive Date: 20121127
  Receipt Date: 20131025
  Transmission Date: 20140711
  Serious: Yes (Hospitalization, Other)
  Sender: FDA-Public Use
  Company Number: US-ROCHE-1096504

PATIENT
  Sex: Male
  Weight: 54.48 kg

DRUGS (3)
  1. ACCUTANE [Suspect]
     Indication: ACNE
     Route: 065
     Dates: start: 199906, end: 200006
  2. ACCUTANE [Suspect]
     Route: 065
     Dates: start: 200001, end: 200004
  3. ACCUTANE [Suspect]
     Route: 065
     Dates: start: 20000210, end: 20000411

REACTIONS (7)
  - Colitis ulcerative [Unknown]
  - Inflammatory bowel disease [Unknown]
  - Cholangitis sclerosing [Unknown]
  - Irritable bowel syndrome [Unknown]
  - Dry skin [Unknown]
  - Cheilitis [Unknown]
  - Conjunctivitis [Unknown]
